FAERS Safety Report 8482983-6 (Version None)
Quarter: 2012Q2

REPORT INFORMATION
  Report Type: 
  Country: None (occurrence: None)
  Receive Date: 20120625
  Receipt Date: 20120615
  Transmission Date: 20120825
  Serious: Yes (Other)
  Sender: FDA-Public Use
  Company Number: DSA_57995_2012

PATIENT

DRUGS (4)
  1. DOCETAXEL [Suspect]
     Indication: GASTRIC CANCER
     Dosage: 75 MG/M2, EVERY THREE WEEKS
  2. FILGRASTIM [Concomitant]
  3. CISPLATIN [Suspect]
     Indication: GASTRIC CANCER
     Dosage: 75 MG/M2, EVERY THREE WEEKS
  4. FLUOROURACIL [Suspect]
     Indication: GASTRIC CANCER
     Dosage: 300 MG/M2, EVERY THREE WEEKS

REACTIONS (2)
  - FEBRILE NEUTROPENIA [None]
  - NEUTROPENIA [None]
